FAERS Safety Report 7690731-2 (Version None)
Quarter: 2011Q3

REPORT INFORMATION
  Report Type: 
  Country: None (occurrence: None)
  Receive Date: 20110818
  Receipt Date: 20110809
  Transmission Date: 20111222
  Serious: Yes (Hospitalization)
  Sender: FDA-Public Use
  Company Number: RU-SANOFI-AVENTIS-2011SA044054

PATIENT
  Sex: Male
  Weight: 115 kg

DRUGS (7)
  1. VERAPAMIL [Concomitant]
  2. WARFARIN SODIUM [Concomitant]
  3. LISINOPRIL [Concomitant]
  4. DRONEDARONE HCL [Suspect]
     Indication: ATRIAL FIBRILLATION
     Route: 048
     Dates: start: 20101215
  5. ASPIRIN [Concomitant]
     Dates: start: 20110315, end: 20110316
  6. ACTOVEGIN 10%-NACL [Concomitant]
     Dates: start: 20110315, end: 20110325
  7. BETAHISTINE [Concomitant]
     Dates: start: 20110328

REACTIONS (1)
  - HYPERTENSIVE CRISIS [None]
